FAERS Safety Report 7281979-X (Version None)
Quarter: 2011Q1

REPORT INFORMATION
  Report Type: 
  Country: None (occurrence: None)
  Receive Date: 20110208
  Receipt Date: 20110127
  Transmission Date: 20110831
  Serious: No
  Sender: FDA-Public Use
  Company Number: US-GENENTECH-313046

PATIENT
  Sex: Male

DRUGS (1)
  1. XOLAIR [Suspect]
     Indication: PRODUCT USED FOR UNKNOWN INDICATION
     Dosage: 100 MG, Q2W
     Route: 058
     Dates: start: 20101202

REACTIONS (3)
  - DYSPHONIA [None]
  - DYSPNOEA [None]
  - PHARYNGEAL OEDEMA [None]
